FAERS Safety Report 9799591 (Version 3)
Quarter: 2015Q3

REPORT INFORMATION
  Report Type: Spontaneous
  Country: US (occurrence: US)
  Receive Date: 20140106
  Receipt Date: 20150806
  Transmission Date: 20151125
  Serious: No
  Sender: FDA-Public Use
  Company Number: US-GILEAD-2010-0031394

PATIENT
  Age: 57 Year
  Sex: Male
  Weight: 163.29 kg

DRUGS (19)
  1. OXYGEN. [Concomitant]
     Active Substance: OXYGEN
  2. COMBIVENT [Concomitant]
     Active Substance: ALBUTEROL SULFATE\IPRATROPIUM BROMIDE
  3. LISINOPRIL. [Concomitant]
     Active Substance: LISINOPRIL
  4. CARSOPRODOL [Concomitant]
  5. ALPRAZOLAM. [Concomitant]
     Active Substance: ALPRAZOLAM
  6. EFFEXOR XR [Concomitant]
     Active Substance: VENLAFAXINE HYDROCHLORIDE
  7. LETAIRIS [Suspect]
     Active Substance: AMBRISENTAN
     Indication: PULMONARY ARTERIAL HYPERTENSION
     Route: 048
     Dates: start: 20090921
  8. AMLODIPINE BESYLATE. [Concomitant]
     Active Substance: AMLODIPINE BESYLATE
  9. SPIRONOLACTONE. [Concomitant]
     Active Substance: SPIRONOLACTONE
  10. LASIX [Concomitant]
     Active Substance: FUROSEMIDE
  11. PRAVASTATIN [Concomitant]
     Active Substance: PRAVASTATIN\PRAVASTATIN SODIUM
  12. NOVOLIN 70/30 [Concomitant]
     Active Substance: INSULIN HUMAN
  13. LANTUS [Concomitant]
     Active Substance: INSULIN GLARGINE
  14. OXYCONTIN [Concomitant]
     Active Substance: OXYCODONE HYDROCHLORIDE
  15. ADCIRCA [Concomitant]
     Active Substance: TADALAFIL
  16. NOVOLOG [Concomitant]
     Active Substance: INSULIN ASPART
  17. BUMEX [Concomitant]
     Active Substance: BUMETANIDE
  18. POTASSIUM CHLORIDE. [Concomitant]
     Active Substance: POTASSIUM CHLORIDE
  19. OXYCODONE [Concomitant]
     Active Substance: OXYCODONE

REACTIONS (2)
  - Dry mouth [Unknown]
  - Diarrhoea [Unknown]
